FAERS Safety Report 7660374-5 (Version None)
Quarter: 2011Q3

REPORT INFORMATION
  Report Type: 
  Country: None (occurrence: None)
  Receive Date: 20110805
  Receipt Date: 20110721
  Transmission Date: 20111222
  Serious: Yes (Hospitalization)
  Sender: FDA-Public Use
  Company Number: TH-WATSON-2011-11827

PATIENT
  Age: 10 Year
  Sex: Male

DRUGS (2)
  1. AZATHIOPRINE [Suspect]
     Indication: THALASSAEMIA BETA
     Dosage: 2 MG/KG, DAILY
  2. CYCLOSPORINE [Suspect]
     Indication: STEM CELL TRANSPLANT
     Dosage: UNK

REACTIONS (3)
  - ISCHAEMIC STROKE [None]
  - DRUG INEFFECTIVE [None]
  - ANTIPHOSPHOLIPID SYNDROME [None]
